FAERS Safety Report 9321314 (Version 1)
Quarter: 2013Q2

REPORT INFORMATION
  Report Type: Spontaneous
  Country: JP (occurrence: JP)
  Receive Date: 20130531
  Receipt Date: 20130531
  Transmission Date: 20140414
  Serious: Yes (Other)
  Sender: FDA-Public Use
  Company Number: JP-ASTELLAS-2013JP005831

PATIENT
  Age: 85 Year
  Sex: Male

DRUGS (10)
  1. BETANIS [Suspect]
     Indication: HYPERTONIC BLADDER
     Dosage: 50 MG, UNKNOWN/D
     Route: 048
  2. LUPRAC [Suspect]
     Dosage: 4 MG, UNKNOWN/D
     Route: 048
  3. SODIUM VALPROATE [Suspect]
     Dosage: 400 MG, UNKNOWN/D
     Route: 048
  4. OLMETEC [Concomitant]
     Dosage: 20 MG, UNKNOWN/D
     Route: 048
  5. SORENTMIN                          /00774301/ [Concomitant]
     Dosage: 0.25 MG, UID/QD
     Route: 048
  6. MAGMITT [Concomitant]
     Dosage: 1 G, UNKNOWN/D
     Route: 048
  7. SEDAGASTON [Concomitant]
     Dosage: 2 G, UNKNOWN/D
     Route: 048
  8. CALONAL [Concomitant]
     Dosage: 1200 MG, UNKNOWN/D
     Route: 065
  9. TAMSULOSIN HYDROCHLORIDE [Concomitant]
     Dosage: 0.2 MG, UNKNOWN/D
     Route: 048
  10. FAMOTIDINE [Concomitant]
     Route: 048

REACTIONS (1)
  - Inappropriate antidiuretic hormone secretion [Not Recovered/Not Resolved]
